FAERS Safety Report 19050882 (Version 1)
Quarter: 2021Q1

REPORT INFORMATION
  Report Type: Spontaneous
  Country: GB (occurrence: GB)
  Receive Date: 20210324
  Receipt Date: 20210324
  Transmission Date: 20210420
  Serious: Yes (Other)
  Sender: FDA-Public Use
  Company Number: GB-TEVA-2021-GB-1892094

PATIENT
  Sex: Female

DRUGS (3)
  1. LEVOTHYROXINE. [Suspect]
     Active Substance: LEVOTHYROXINE
     Dosage: THREE 25MCG TABLETS (75MCG/DAY) FOUR DAYS A WEEK, 3DF
  2. LEVOTHYROXINE. [Suspect]
     Active Substance: LEVOTHYROXINE
     Indication: HYPOTHYROIDISM
     Dosage: REDUCED DOSAGE ^LESS HALF A TABLET, SOMETIMES A QUARTER^ (62.5?68.75MCG/DAY) THE OTHER THREE DAYS
  3. LEVOTHYROXINE. [Suspect]
     Active Substance: LEVOTHYROXINE
     Dosage: 75 MICROGRAM DAILY; (FOR 28 YEARS)
     Dates: start: 1993

REACTIONS (4)
  - Wrong technique in product usage process [Unknown]
  - Psychomotor hyperactivity [Recovered/Resolved]
  - Agitation [Recovered/Resolved]
  - Cardiac flutter [Recovered/Resolved]

NARRATIVE: CASE EVENT DATE: 202001
